FAERS Safety Report 8387202-7 (Version None)
Quarter: 2012Q2

REPORT INFORMATION
  Report Type: 
  Country: None (occurrence: None)
  Receive Date: 20120525
  Receipt Date: 20120517
  Transmission Date: 20120825
  Serious: Yes (Other)
  Sender: FDA-Public Use
  Company Number: US-ABBOTT-12P-163-0937316-00

PATIENT
  Sex: Female
  Weight: 59.02 kg

DRUGS (7)
  1. EXCEDRIN (MIGRAINE) [Concomitant]
     Indication: MIGRAINE
  2. PHENTERMINE [Concomitant]
     Indication: DECREASED APPETITE
     Dosage: ONCE OR TWICE A MONTH
  3. PHENTERMINE [Concomitant]
     Indication: WEIGHT INCREASED
  4. LUPRON DEPOT [Suspect]
     Dates: start: 20120305
  5. SEASONIQUE [Suspect]
     Indication: CONTRACEPTION
     Dates: start: 20110601, end: 20120201
  6. PHENTERMINE [Concomitant]
     Indication: FLUID RETENTION
  7. LUPRON DEPOT [Suspect]
     Indication: ENDOMETRIOSIS
     Dates: start: 20101201, end: 20110601

REACTIONS (5)
  - MENSTRUATION IRREGULAR [None]
  - ENDOMETRIOSIS [None]
  - HOT FLUSH [None]
  - NIGHT SWEATS [None]
  - PAIN [None]
